FAERS Safety Report 17120565 (Version 1)
Quarter: 2019Q4

REPORT INFORMATION
  Report Type: Spontaneous
  Country: US (occurrence: US)
  Receive Date: 20191206
  Receipt Date: 20191206
  Transmission Date: 20200122
  Serious: No
  Sender: FDA-Public Use
  Company Number: US-TEVA-2019-US-1150046

PATIENT

DRUGS (1)
  1. AIRDUO RESPICLICK [Suspect]
     Active Substance: FLUTICASONE PROPIONATE\SALMETEROL XINAFOATE
     Dosage: FLUTICASONE PROPIONATE 232 MICROGRAM/ SALMETEROL XINAFOATE 14 MICROGRAM
     Route: 065

REACTIONS (2)
  - Device malfunction [Unknown]
  - Asthma [Unknown]
